FAERS Safety Report 9931671 (Version 3)
Quarter: 2014Q2

REPORT INFORMATION
  Report Type: Report from Study
  Country: GB (occurrence: GB)
  Receive Date: 20140228
  Receipt Date: 20140417
  Transmission Date: 20141212
  Serious: Yes (Hospitalization, Other)
  Sender: FDA-Public Use
  Company Number: GB-ROCHE-1357872

PATIENT
  Age: 89 Year
  Sex: Male

DRUGS (16)
  1. RANIBIZUMAB [Suspect]
     Indication: FALL
     Route: 050
     Dates: start: 20110527
  2. RANIBIZUMAB [Suspect]
     Dosage: PATIENT RECEIVED RECENT DOSE OF LUCENTIS ON 31 MAY 2013,
     Route: 050
     Dates: start: 20130531
  3. AMLODIPINE [Concomitant]
     Route: 065
     Dates: start: 201002
  4. AMLODIPINE [Concomitant]
     Route: 065
     Dates: start: 20130919
  5. ESOMEPRAZOLE [Concomitant]
     Route: 065
     Dates: start: 201002
  6. ESOMEPRAZOLE [Concomitant]
     Route: 065
     Dates: start: 20130919
  7. LACTULOSE [Concomitant]
     Route: 065
     Dates: start: 2012
  8. LACTULOSE [Concomitant]
     Route: 065
     Dates: start: 20130919, end: 20130926
  9. SENNA [Concomitant]
     Route: 065
     Dates: start: 2012
  10. SENNA [Concomitant]
     Route: 065
     Dates: start: 20130919, end: 20130926
  11. FERROUS FUMARATE [Concomitant]
     Route: 065
     Dates: start: 2012
  12. FERROUS FUMARATE [Concomitant]
     Route: 065
     Dates: start: 20130919
  13. ALENDRONATE SODIUM [Concomitant]
     Route: 065
     Dates: start: 2012
  14. ALENDRONATE SODIUM [Concomitant]
     Route: 065
     Dates: start: 20130919, end: 20130926
  15. ADCAL-D3 [Concomitant]
     Route: 065
     Dates: start: 2012
  16. ADCAL-D3 [Concomitant]
     Route: 065
     Dates: start: 20130919, end: 20130926

REACTIONS (2)
  - Fall [Unknown]
  - Lower respiratory tract infection [Unknown]
